FAERS Safety Report 5127492-7 (Version None)
Quarter: 2006Q4

REPORT INFORMATION
  Report Type: 
  Country: None (occurrence: None)
  Receive Date: 20061010
  Receipt Date: 20060924
  Transmission Date: 20070319
  Serious: Yes (Other)
  Sender: FDA-Public Use
  Company Number: 2006116135

PATIENT
  Age: 75 Year
  Sex: Male

DRUGS (5)
  1. LYRICA [Suspect]
     Indication: PAIN
     Dosage: ORAL
     Route: 048
  2. VALORON N RETARD (NALOXONE, TILIDINE) [Concomitant]
  3. CORTISONE ACETATE [Concomitant]
  4. DICLOFENAC SODIUM [Concomitant]
  5. LORZAAR (LOSARTAN POTASSIUM) [Concomitant]

REACTIONS (2)
  - DRUG INTERACTION [None]
  - PULMONARY FIBROSIS [None]
